FAERS Safety Report 17665336 (Version 2)
Quarter: 2020Q2

REPORT INFORMATION
  Report Type: Spontaneous
  Country: US (occurrence: US)
  Receive Date: 20200414
  Receipt Date: 20200415
  Transmission Date: 20200713
  Serious: Yes (Death)
  Sender: FDA-Public Use
  Company Number: US-PFIZER INC-2020149268

PATIENT
  Sex: Female

DRUGS (2)
  1. LIDOCAINE HCL [Suspect]
     Active Substance: LIDOCAINE HYDROCHLORIDE
     Indication: LOCAL ANAESTHESIA
     Dosage: 125 MG, UNK
  2. LIDOCAINE HCL [Suspect]
     Active Substance: LIDOCAINE HYDROCHLORIDE
     Dosage: UNK (2 PERCENT LIDOCAINE SOLUTION, 3, BOTTLES OF 50-ML CAPACITY, 1 STILL CONTAINED 25 ML)

REACTIONS (3)
  - Overdose [Fatal]
  - Circulatory collapse [Fatal]
  - Toxicity to various agents [Fatal]
